FAERS Safety Report 5277336-8 (Version None)
Quarter: 2007Q1

REPORT INFORMATION
  Report Type: 
  Country: None (occurrence: None)
  Receive Date: 20061213
  Receipt Date: 20040726
  Transmission Date: 20070707
  Serious: No
  Sender: FDA-Public Use
  Company Number: 2004UW15691

PATIENT

DRUGS (2)
  1. SEROQUEL [Suspect]
     Dosage: 800 MG PO
     Route: 048
  2. SEROQUEL [Suspect]
     Dosage: 1500 MG PO
     Route: 048

REACTIONS (1)
  - CEREBROVASCULAR ACCIDENT [None]
